FAERS Safety Report 12768516 (Version 3)
Quarter: 2017Q2

REPORT INFORMATION
  Report Type: Spontaneous
  Country: US (occurrence: US)
  Receive Date: 20160921
  Receipt Date: 20170410
  Transmission Date: 20170830
  Serious: Yes (Hospitalization)
  Sender: FDA-Public Use
  Company Number: US-PFIZER INC-2016440021

PATIENT
  Age: 68 Year
  Sex: Female
  Weight: 68.4 kg

DRUGS (3)
  1. TRAZODONE [Concomitant]
     Active Substance: TRAZODONE HYDROCHLORIDE
     Dosage: UNK
  2. LYRICA [Suspect]
     Active Substance: PREGABALIN
     Indication: DIABETIC NEUROPATHY
     Dosage: 75 MG, 2X/DAY
  3. LYRICA [Suspect]
     Active Substance: PREGABALIN
     Dosage: 75 MG, 2X/DAY
     Route: 048

REACTIONS (8)
  - Lung disorder [Recovered/Resolved]
  - Off label use [Unknown]
  - Erythema [Not Recovered/Not Resolved]
  - Pain [Recovering/Resolving]
  - Scar [Not Recovered/Not Resolved]
  - Hypoaesthesia [Recovering/Resolving]
  - Drug dose omission [Not Recovered/Not Resolved]
  - Swelling [Not Recovered/Not Resolved]

NARRATIVE: CASE EVENT DATE: 201609
